FAERS Safety Report 9363557 (Version 1)
Quarter: 2013Q2

REPORT INFORMATION
  Report Type: Spontaneous
  Country: US (occurrence: US)
  Receive Date: 20130624
  Receipt Date: 20130624
  Transmission Date: 20140414
  Serious: No
  Sender: FDA-Public Use
  Company Number: US-JNJFOC-20130520591

PATIENT
  Age: 32 Year
  Sex: Male

DRUGS (9)
  1. INVEGA SUSTENNA [Suspect]
     Indication: SCHIZOPHRENIA
     Route: 030
     Dates: start: 20130410
  2. TESTOSTERONE [Concomitant]
     Indication: BLOOD TESTOSTERONE DECREASED
     Route: 030
  3. PROPRANOLOL [Concomitant]
     Route: 048
  4. LORAZEPAM [Concomitant]
     Dosage: 2 MG, 3 - 4 TIMES DAILY
     Route: 048
  5. LEXAPRO [Concomitant]
     Route: 048
  6. GEODON [Concomitant]
     Route: 048
  7. VISTARIL [Concomitant]
     Route: 048
  8. LISINOPRIL [Concomitant]
     Route: 048
  9. IBUPROFEN [Concomitant]
     Route: 048

REACTIONS (2)
  - Agitation [Unknown]
  - Aggression [Unknown]
